FAERS Safety Report 8898593 (Version 2)
Quarter: 2012Q4

REPORT INFORMATION
  Report Type: 
  Country: IN (occurrence: IN)
  Receive Date: 20121109
  Receipt Date: 20121207
  Transmission Date: 20130627
  Serious: Yes (Death)
  Sender: FDA-Public Use
  Company Number: IN-009507513-1211IND001747

PATIENT
  Age: 55 Year
  Sex: Female

DRUGS (6)
  1. JANUVIA [Suspect]
     Indication: TYPE 2 DIABETES MELLITUS
     Dosage: 100 mg, qd
     Route: 048
  2. PIOGLAR [Concomitant]
  3. ATOCOR [Concomitant]
  4. CORPRIL [Concomitant]
  5. THYRONORM [Concomitant]
  6. NOVOMIX [Concomitant]

REACTIONS (2)
  - Respiratory disorder [Fatal]
  - Anaemia [Unknown]
